FAERS Safety Report 7284198-6 (Version None)
Quarter: 2011Q1

REPORT INFORMATION
  Report Type: 
  Country: None (occurrence: None)
  Receive Date: 20110209
  Receipt Date: 20110131
  Transmission Date: 20110831
  Serious: Yes (Other)
  Sender: FDA-Public Use
  Company Number: US-CELGENEUS-163-21880-11020495

PATIENT
  Sex: Male
  Weight: 78.47 kg

DRUGS (11)
  1. REVLIMID [Suspect]
     Indication: MULTIPLE MYELOMA
     Route: 048
     Dates: start: 20101201, end: 20110101
  2. VELCADE [Concomitant]
     Route: 050
     Dates: start: 20101214
  3. VITAMIN B COMPLEX [Concomitant]
     Route: 048
     Dates: start: 20101214
  4. ASPIRIN [Concomitant]
     Route: 048
     Dates: start: 20101214
  5. VITAMIN D [Concomitant]
     Dosage: 2000 UNIT
     Route: 048
     Dates: start: 20101214
  6. IRON [Concomitant]
     Route: 048
     Dates: start: 20101214
  7. FISH OIL [Concomitant]
     Dosage: 500-100MG
     Route: 048
     Dates: start: 20101214
  8. AMBIEN [Concomitant]
     Indication: INSOMNIA
     Route: 048
     Dates: start: 20101214
  9. PREDNISONE [Concomitant]
     Route: 048
     Dates: start: 20101214
  10. DEXAMETHASONE [Concomitant]
     Route: 048
     Dates: start: 20101214
  11. NEXIUM [Concomitant]
     Route: 048
     Dates: start: 20101214

REACTIONS (2)
  - SKIN ULCER [None]
  - IMPAIRED HEALING [None]
